FAERS Safety Report 14813134 (Version 1)
Quarter: 2018Q2

REPORT INFORMATION
  Report Type: Spontaneous
  Country: US (occurrence: US)
  Receive Date: 20180426
  Receipt Date: 20180426
  Transmission Date: 20180711
  Serious: No
  Sender: FDA-Public Use
  Company Number: US-MALLINCKRODT-T201702481

PATIENT
  Sex: Male

DRUGS (2)
  1. RESTORIL [Suspect]
     Active Substance: TEMAZEPAM
     Indication: PRODUCT USED FOR UNKNOWN INDICATION
     Dosage: 30 MG, BID (ONE AT BEDTIME AND ONE WHEN HE WAKES UP IN THE NIGHT)
     Route: 048
  2. MELATONIN [Concomitant]
     Active Substance: MELATONIN
     Dosage: UNK, AT HS

REACTIONS (2)
  - Drug prescribing error [Unknown]
  - Therapeutic response shortened [Unknown]
